FAERS Safety Report 8581052 (Version 17)
Quarter: 2015Q1

REPORT INFORMATION
  Report Type: Spontaneous
  Country: US (occurrence: US)
  Receive Date: 20120525
  Receipt Date: 20150304
  Transmission Date: 20150721
  Serious: Yes (Death, Hospitalization, Other)
  Sender: FDA-Public Use
  Company Number: US-GLAXOSMITHKLINE-A0978920A

PATIENT
  Age: 40 Year
  Sex: Female

DRUGS (12)
  1. FLOLAN [Suspect]
     Active Substance: EPOPROSTENOL SODIUM
     Dosage: UNK
     Dates: start: 20080617
  2. FLOLAN [Suspect]
     Active Substance: EPOPROSTENOL SODIUM
     Dosage: 70 NG/KG/MIN, UNK
     Route: 065
  3. FLOLAN [Suspect]
     Active Substance: EPOPROSTENOL SODIUM
     Dosage: UNK
     Dates: start: 20080617
  4. FLOLAN [Suspect]
     Active Substance: EPOPROSTENOL SODIUM
     Indication: PULMONARY HYPERTENSION
     Dosage: UNK
     Dates: start: 20080617
  5. FLOLAN [Suspect]
     Active Substance: EPOPROSTENOL SODIUM
     Dosage: 70 NG/KG/MIN, CO
     Route: 065
     Dates: start: 20080617
  6. COUMADIN [Concomitant]
     Active Substance: WARFARIN SODIUM
  7. FLOLAN [Suspect]
     Active Substance: EPOPROSTENOL SODIUM
     Indication: COR PULMONALE CHRONIC
     Dosage: 73 NG/KG/MIN, CO
     Route: 065
     Dates: start: 20080617
  8. FLOLAN [Suspect]
     Active Substance: EPOPROSTENOL SODIUM
     Dosage: UNK
     Dates: start: 20080617
  9. FLOLAN [Suspect]
     Active Substance: EPOPROSTENOL SODIUM
     Dosage: 70 NG/KG/MIN, CONCENTRATION 90,000 NG/ML, PUMP RATE 90 ML/DAY, VIAL STRENGTH 1.5 MG, CO
     Route: 065
  10. FLOLAN [Suspect]
     Active Substance: EPOPROSTENOL SODIUM
     Dosage: UNK
     Dates: start: 20080617
  11. FLOLAN [Suspect]
     Active Substance: EPOPROSTENOL SODIUM
     Dosage: 70 NG/KG/MIN (CONCENTRATION 90.000 NG/ML, PUMP RATE 90 ML/DAY, VIAL STRENGTH 1.5 MG), CO
     Route: 042
  12. ADCIRCA [Concomitant]
     Active Substance: TADALAFIL

REACTIONS (12)
  - Abdominal cavity drainage [Unknown]
  - Fluid retention [Unknown]
  - Pulmonary arterial hypertension [Unknown]
  - Device infusion issue [Recovered/Resolved]
  - Medical device complication [Unknown]
  - Fluid overload [Unknown]
  - Hospitalisation [Unknown]
  - Abdominal distension [Unknown]
  - Dyspnoea [Unknown]
  - Treatment noncompliance [Recovered/Resolved]
  - Cardiac failure [Unknown]
  - Death [Fatal]

NARRATIVE: CASE EVENT DATE: 20150205
